FAERS Safety Report 10931047 (Version 1)
Quarter: 2015Q1

REPORT INFORMATION
  Report Type: Spontaneous
  Country: US (occurrence: None)
  Receive Date: 20150225
  Receipt Date: 20150225
  Transmission Date: 20150721
  Serious: Yes (Hospitalization)
  Sender: FDA-Public Use
  Company Number: 2014-US-012403

PATIENT
  Age: 86 Year
  Sex: Male

DRUGS (2)
  1. PRIALT [Suspect]
     Active Substance: ZICONOTIDE ACETATE
     Indication: POST LAMINECTOMY SYNDROME
     Route: 037
  2. TYLENOL [Concomitant]
     Active Substance: ACETAMINOPHEN

REACTIONS (4)
  - Muscular weakness [None]
  - Vomiting [None]
  - Nausea [None]
  - Headache [None]

NARRATIVE: CASE EVENT DATE: 20140923
